FAERS Safety Report 4719671-5 (Version None)
Quarter: 2005Q3

REPORT INFORMATION
  Report Type: 
  Country: None (occurrence: None)
  Receive Date: 20050721
  Receipt Date: 20040611
  Transmission Date: 20060218
  Serious: No
  Sender: FDA-Public Use
  Company Number: US-GLAXOSMITHKLINE-A0514332A

PATIENT
  Age: 45 Year
  Sex: Male

DRUGS (7)
  1. AVANDIA [Suspect]
     Dosage: 8MG PER DAY
     Route: 048
     Dates: start: 19980101
  2. GLUCOTROL [Concomitant]
  3. GLUCOPHAGE [Concomitant]
  4. VIOXX [Concomitant]
  5. TOPROL-XL [Concomitant]
  6. DIOVAN [Concomitant]
  7. ZYRTEC [Concomitant]

REACTIONS (1)
  - FLATULENCE [None]
